FAERS Safety Report 7801809-4 (Version None)
Quarter: 2011Q4

REPORT INFORMATION
  Report Type: 
  Country: None (occurrence: None)
  Receive Date: 20111007
  Receipt Date: 20111003
  Transmission Date: 20120403
  Serious: Yes (Life-Threatening, Hospitalization)
  Sender: FDA-Public Use
  Company Number: GB-PFIZER INC-2011236002

PATIENT
  Age: 15 Year
  Sex: Male
  Weight: 50 kg

DRUGS (12)
  1. SODIUM CHLORIDE [Concomitant]
     Dosage: 7 %, UNK
  2. VITAMIN B NOS [Concomitant]
  3. NOVORAPID [Concomitant]
  4. OMEPRAZOLE [Concomitant]
  5. TEICOPLANIN [Concomitant]
  6. VITAMIN K TAB [Concomitant]
  7. PIPERACILLIN AND TAZOBACTAM [Suspect]
     Indication: SEPSIS
     Dosage: 4.5 G, UNK
     Route: 042
     Dates: start: 20110911, end: 20110911
  8. DORNASE ALFA [Concomitant]
  9. FLUTICASONE [Concomitant]
  10. VITAMIN E [Concomitant]
  11. INSULIN DETEMIR [Concomitant]
  12. URSODEOXYCHOLIC ACID [Concomitant]

REACTIONS (2)
  - VISION BLURRED [None]
  - PARAESTHESIA [None]
